FAERS Safety Report 6645821-X (Version None)
Quarter: 2010Q1

REPORT INFORMATION
  Report Type: 
  Country: None (occurrence: None)
  Receive Date: 20100323
  Receipt Date: 20100311
  Transmission Date: 20100710
  Serious: Yes (Life-Threatening, Other)
  Sender: FDA-Public Use
  Company Number: JP-BRISTOL-MYERS SQUIBB COMPANY-14932032

PATIENT
  Age: 30 Year
  Sex: Male
  Weight: 73 kg

DRUGS (9)
  1. ABILIFY [Suspect]
     Indication: SCHIZOPHRENIA
     Route: 048
     Dates: start: 20091120, end: 20091201
  2. ZOTEPINE [Concomitant]
     Dosage: TABS
     Route: 048
     Dates: start: 20091001, end: 20091214
  3. BENZALIN [Concomitant]
     Dosage: TABLET
     Dates: start: 20091124
  4. HIBERNA [Concomitant]
     Dosage: TABLET
     Dates: start: 20091124
  5. TETRAMIDE [Concomitant]
     Dates: start: 20090416
  6. LUVOX [Concomitant]
     Dosage: TABLET
     Dates: start: 20090522
  7. ARTANE [Concomitant]
     Dosage: TABLET
     Dates: start: 20090601
  8. ZYPREXA [Concomitant]
     Dosage: TABLET
     Dates: start: 20090601
  9. DEPAS [Concomitant]
     Dosage: TABLET
     Dates: start: 20090915

REACTIONS (4)
  - BLOOD PRESSURE SYSTOLIC DECREASED [None]
  - FEELING ABNORMAL [None]
  - HYPOTENSION [None]
  - TACHYCARDIA PAROXYSMAL [None]
